FAERS Safety Report 8450233-2 (Version None)
Quarter: 2012Q2

REPORT INFORMATION
  Report Type: 
  Country: None (occurrence: None)
  Receive Date: 20120614
  Receipt Date: 20120614
  Transmission Date: 20120825
  Serious: No
  Sender: FDA-Public Use
  Company Number: None

PATIENT
  Age: 43 Year
  Sex: Male
  Weight: 83.6 kg

DRUGS (2)
  1. HEPARIN SODIUM 25,000 UNITS IN DEXTROSE 5% [Suspect]
     Indication: PULMONARY EMBOLISM
     Dosage: 25,000 UNITS ONCE IV
     Route: 042
     Dates: start: 20120530, end: 20120530
  2. TRAZODONE 100 MG PO QHS [Concomitant]

REACTIONS (1)
  - HYPERKALAEMIA [None]
